FAERS Safety Report 19097665 (Version 2)
Quarter: 2021Q2

REPORT INFORMATION
  Report Type: Spontaneous
  Country: US (occurrence: US)
  Receive Date: 20210406
  Receipt Date: 20210416
  Transmission Date: 20210717
  Serious: Yes (Death, Hospitalization, Other)
  Sender: FDA-Public Use
  Company Number: US-APOTEX-2021AP008021

PATIENT
  Age: 49 Year
  Sex: Female

DRUGS (1)
  1. TYLENOL [Suspect]
     Active Substance: ACETAMINOPHEN
     Indication: PRODUCT USED FOR UNKNOWN INDICATION
     Dosage: UNK
     Route: 065

REACTIONS (13)
  - Tachypnoea [Fatal]
  - Prothrombin time prolonged [Fatal]
  - Overdose [Fatal]
  - Metabolic acidosis [Fatal]
  - International normalised ratio increased [Fatal]
  - Hepatic enzyme increased [Fatal]
  - Unresponsive to stimuli [Fatal]
  - Anion gap [Fatal]
  - Analgesic drug level increased [Fatal]
  - Lactic acidosis [Fatal]
  - Tachycardia [Fatal]
  - Procalcitonin increased [Fatal]
  - Drug-induced liver injury [Fatal]
